FAERS Safety Report 18579016 (Version 1)
Quarter: 2020Q4

REPORT INFORMATION
  Report Type: Spontaneous
  Country: FR (occurrence: FR)
  Receive Date: 20201204
  Receipt Date: 20201204
  Transmission Date: 20210114
  Serious: Yes (Hospitalization)
  Sender: FDA-Public Use
  Company Number: FR-SA-2020SA342542

PATIENT

DRUGS (4)
  1. BROMAZEPAM [Suspect]
     Active Substance: BROMAZEPAM
     Indication: DRUG USE DISORDER
  2. ZOPICLONE [Suspect]
     Active Substance: ZOPICLONE
     Indication: DRUG USE DISORDER
     Route: 048
  3. STILNOX [Suspect]
     Active Substance: ZOLPIDEM TARTRATE
     Indication: DRUG USE DISORDER
  4. OXAZEPAM. [Suspect]
     Active Substance: OXAZEPAM
     Indication: DRUG USE DISORDER
     Route: 048

REACTIONS (2)
  - Drug use disorder [Not Recovered/Not Resolved]
  - Fall [Recovered/Resolved]

NARRATIVE: CASE EVENT DATE: 20200331
